FAERS Safety Report 24453267 (Version 4)
Quarter: 2024Q4

REPORT INFORMATION
  Report Type: Spontaneous
  Country: US (occurrence: US)
  Receive Date: 20241017
  Receipt Date: 20241217
  Transmission Date: 20250115
  Serious: Yes (Other)
  Sender: MALLINCKRODT
  Company Number: US-MALLINCKRODT-MNK202406193

PATIENT
  Age: 85 Year
  Sex: Female

DRUGS (5)
  1. CORTICOTROPIN [Suspect]
     Active Substance: CORTICOTROPIN
     Indication: Iridocyclitis
     Route: 058
     Dates: start: 20240716, end: 2024
  2. CORTICOTROPIN [Suspect]
     Active Substance: CORTICOTROPIN
     Route: 058
     Dates: start: 202407
  3. BACTRIM [Concomitant]
     Active Substance: SULFAMETHOXAZOLE\TRIMETHOPRIM
     Dosage: UNKNOWN
  4. BACTRIM [Concomitant]
     Active Substance: SULFAMETHOXAZOLE\TRIMETHOPRIM
     Dosage: UNKNOWN
  5. COVID-19 VACCINE [Concomitant]
     Dosage: UNKNOWN

REACTIONS (10)
  - Iridocyclitis [Not Recovered/Not Resolved]
  - Syncope [Unknown]
  - Rheumatoid arthritis [Not Recovered/Not Resolved]
  - Macular degeneration [Unknown]
  - Muscle tightness [Unknown]
  - Gastrointestinal disorder [Unknown]
  - Dizziness [Unknown]
  - Illness [Unknown]
  - Hyperhidrosis [Unknown]
  - Asthenia [Unknown]

NARRATIVE: CASE EVENT DATE: 20240101
